FAERS Safety Report 7512558-4 (Version None)
Quarter: 2011Q2

REPORT INFORMATION
  Report Type: 
  Country: None (occurrence: None)
  Receive Date: 20110531
  Receipt Date: 20110523
  Transmission Date: 20111010
  Serious: Yes (Death, Hospitalization)
  Sender: FDA-Public Use
  Company Number: AR-ROCHE-778945

PATIENT
  Sex: Male

DRUGS (3)
  1. BELATACEPT [Suspect]
     Route: 042
     Dates: start: 20060220
  2. MEPREDNISONE [Suspect]
     Route: 065
     Dates: start: 20060220, end: 20101218
  3. MYCOPHENOLATE MEFETIL [Suspect]
     Route: 065
     Dates: start: 20060220, end: 20110107

REACTIONS (2)
  - SEPSIS [None]
  - HEAD INJURY [None]
